FAERS Safety Report 5954339-9 (Version None)
Quarter: 2008Q4

REPORT INFORMATION
  Report Type: 
  Country: None (occurrence: None)
  Receive Date: 20081112
  Receipt Date: 20081028
  Transmission Date: 20090506
  Serious: Yes (Other)
  Sender: FDA-Public Use
  Company Number: 2008S1013209

PATIENT
  Age: 70 Year
  Sex: Male

DRUGS (2)
  1. TRINITRINE MERCK 5 MG / 24 H (GLYCERYL TRINITRATE) (5 MG/ HR) [Suspect]
     Indication: ANGINA PECTORIS
     Dosage: 5 MG; DAILY; TRANSDERMAL
     Route: 062
  2. NITRODERM [Concomitant]

REACTIONS (3)
  - ANGINA PECTORIS [None]
  - CONDITION AGGRAVATED [None]
  - PAIN [None]
